FAERS Safety Report 7925941-X (Version None)
Quarter: 2011Q4

REPORT INFORMATION
  Report Type: 
  Country: None (occurrence: None)
  Receive Date: 20111118
  Receipt Date: 20110415
  Transmission Date: 20120403
  Serious: No
  Sender: FDA-Public Use
  Company Number: US-AMGEN-USASP2011020039

PATIENT
  Age: 40 Year
  Sex: Female

DRUGS (1)
  1. ENBREL [Suspect]
     Indication: ANKYLOSING SPONDYLITIS
     Dosage: 50 MG, QWK
     Dates: start: 20080701

REACTIONS (8)
  - VOMITING [None]
  - CHEST PAIN [None]
  - SECRETION DISCHARGE [None]
  - COUGH [None]
  - SINUSITIS [None]
  - HEADACHE [None]
  - WHEEZING [None]
  - PYREXIA [None]
